FAERS Safety Report 4511201-6 (Version None)
Quarter: 2004Q4

REPORT INFORMATION
  Report Type: 
  Country: None (occurrence: None)
  Receive Date: 20041122
  Receipt Date: 20041122
  Transmission Date: 20050328
  Serious: No
  Sender: FDA-Public Use
  Company Number: None

PATIENT
  Age: 61 Year
  Sex: Female
  Weight: 71.6683 kg

DRUGS (2)
  1. ADVAIR DISKUS 250/50 [Suspect]
     Indication: ASTHMA
     Dosage: 1 DISKUS  TWICE A DAY RESPIRATORY
     Route: 055
     Dates: start: 20010415, end: 20010918
  2. ALBUTEROL [Concomitant]

REACTIONS (7)
  - ABDOMINAL PAIN UPPER [None]
  - ARTHRALGIA [None]
  - EAR INFECTION [None]
  - EYE INFECTION [None]
  - FLUID RETENTION [None]
  - JOINT SWELLING [None]
  - MALAISE [None]
